FAERS Safety Report 8390389-3 (Version None)
Quarter: 2012Q2

REPORT INFORMATION
  Report Type: 
  Country: None (occurrence: None)
  Receive Date: 20120529
  Receipt Date: 20120516
  Transmission Date: 20120825
  Serious: Yes (Hospitalization, Other)
  Sender: FDA-Public Use
  Company Number: CA-JNJFOC-20120514171

PATIENT
  Sex: Female
  Weight: 104 kg

DRUGS (2)
  1. REMICADE [Suspect]
     Indication: RHEUMATOID ARTHRITIS
     Route: 042
     Dates: start: 20120515
  2. REMICADE [Suspect]
     Route: 042
     Dates: start: 20090123

REACTIONS (4)
  - COUGH [None]
  - INFUSION RELATED REACTION [None]
  - CEREBROVASCULAR ACCIDENT [None]
  - BACK PAIN [None]
